FAERS Safety Report 12144391 (Version 4)
Quarter: 2016Q3

REPORT INFORMATION
  Report Type: Spontaneous
  Country: US (occurrence: US)
  Receive Date: 20160304
  Receipt Date: 20160923
  Transmission Date: 20161109
  Serious: Yes (Hospitalization)
  Sender: FDA-Public Use
  Company Number: US-PFIZER INC-2016104973

PATIENT
  Age: 59 Year
  Sex: Female
  Weight: 58.6 kg

DRUGS (1)
  1. LYRICA [Suspect]
     Active Substance: PREGABALIN
     Dosage: UNK

REACTIONS (7)
  - Burning sensation [Unknown]
  - Groin pain [Unknown]
  - Influenza like illness [Unknown]
  - Pain in extremity [Unknown]
  - Migraine [Unknown]
  - Pain [Unknown]
  - Headache [Unknown]
